FAERS Safety Report 8338359-5 (Version None)
Quarter: 2012Q2

REPORT INFORMATION
  Report Type: 
  Country: None (occurrence: None)
  Receive Date: 20120504
  Receipt Date: 20120426
  Transmission Date: 20120825
  Serious: Yes (Other)
  Sender: FDA-Public Use
  Company Number: ES-ROCHE-1063677

PATIENT
  Age: 79 Year
  Sex: Male

DRUGS (18)
  1. IRBESARTAN [Concomitant]
  2. HIDROFEROL [Concomitant]
  3. COMBIGAN [Concomitant]
  4. REPAGLINIDE [Concomitant]
  5. INSULIN GLARGINE [Concomitant]
  6. MIRCERA [Suspect]
     Route: 065
     Dates: start: 20111222
  7. SORBISTERIT [Concomitant]
  8. BONESIL D FLAS [Concomitant]
  9. ASPIRIN [Concomitant]
  10. CLOPIDOGREL [Concomitant]
  11. DEPAKENE [Concomitant]
  12. ALLOPURINOL [Concomitant]
  13. CARVEDILOL [Concomitant]
  14. MIRCERA [Suspect]
     Indication: RENAL FAILURE CHRONIC
     Route: 065
     Dates: start: 20110920, end: 20111120
  15. STALEVO 100 [Concomitant]
  16. OMEPRAZOLE [Concomitant]
  17. FUROSEMIDE [Concomitant]
  18. ATORVASTATIN CALCIUM [Concomitant]

REACTIONS (5)
  - NAUSEA [None]
  - VOMITING [None]
  - DIARRHOEA [None]
  - LOSS OF CONSCIOUSNESS [None]
  - DIZZINESS [None]
